FAERS Safety Report 12801032 (Version 2)
Quarter: 2016Q4

REPORT INFORMATION
  Report Type: Report from Study
  Country: FR (occurrence: FR)
  Receive Date: 20161003
  Receipt Date: 20161029
  Transmission Date: 20170207
  Serious: Yes (Death, Hospitalization, Other)
  Sender: FDA-Public Use
  Company Number: FR-AMGEN-FRANI2016134900

PATIENT
  Age: 72 Year
  Sex: Male

DRUGS (13)
  1. CARFILZOMIB [Suspect]
     Active Substance: CARFILZOMIB
     Indication: PLASMA CELL MYELOMA
     Dosage: 20/27 MG/M2, UNK
     Route: 065
     Dates: start: 20160804, end: 201608
  2. CARFILZOMIB [Suspect]
     Active Substance: CARFILZOMIB
     Dosage: 47.61 MG, ON DAY ONE, TWO, EIGHT, NINE, FIFTEEN, AND SIXTEEN
     Route: 042
     Dates: start: 20160822, end: 20160906
  3. MACROGOL [Concomitant]
     Active Substance: POLYETHYLENE GLYCOLS
     Dosage: 1 BAG, QD, ONLY IF CONSTIPATION
     Route: 048
     Dates: start: 20160924
  4. VALACICLOVIR [Concomitant]
     Active Substance: VALACYCLOVIR HYDROCHLORIDE
     Dosage: 500 MG, QD
     Route: 048
     Dates: start: 20160920
  5. METOCLOPRAMIDE. [Concomitant]
     Active Substance: METOCLOPRAMIDE
     Dosage: 10 MG, QD
     Route: 042
     Dates: start: 20160915
  6. ALPRAZOLAM. [Concomitant]
     Active Substance: ALPRAZOLAM
     Dosage: 0.25 MG, QD
     Route: 048
     Dates: start: 20160923
  7. LENALIDOMIDE [Concomitant]
     Active Substance: LENALIDOMIDE
     Indication: PLASMA CELL MYELOMA
     Dosage: UNK
     Dates: start: 20160804
  8. PANTOPRAZOLE [Concomitant]
     Active Substance: PANTOPRAZOLE SODIUM
     Dosage: UNK UNK, QD
     Route: 048
     Dates: start: 20160919
  9. ACTISKENAN [Concomitant]
     Active Substance: MORPHINE SULFATE
     Dosage: 5 MG, 6 TIMES DURING THE DAY WITH DELAYS OF 1 HOUR
     Route: 048
     Dates: start: 20160922
  10. PARACETAMOL [Concomitant]
     Active Substance: ACETAMINOPHEN
     Dosage: 1000 MG, TID, DURING A DAY WITH A DELAYS OF 8 HOURS
     Route: 042
     Dates: start: 20160915
  11. DEXAMETHASONE. [Concomitant]
     Active Substance: DEXAMETHASONE
     Indication: PLASMA CELL MYELOMA
     Dosage: 40 MG, UNK
     Dates: start: 20160804
  12. FENTANYL. [Concomitant]
     Active Substance: FENTANYL
     Dosage: 25 MCG/H, 1 TRANSDERMAL DEVICE MIDDAY EVERY 3 DAYS
     Route: 062
     Dates: start: 20160923
  13. KARDEGIC [Concomitant]
     Active Substance: ASPIRIN LYSINE
     Dosage: 160 MG, QD
     Route: 048
     Dates: start: 20160919

REACTIONS (1)
  - Neoplasm progression [Fatal]

NARRATIVE: CASE EVENT DATE: 2016
